FAERS Safety Report 7262167-X (Version None)
Quarter: 2011Q1

REPORT INFORMATION
  Report Type: 
  Country: None (occurrence: None)
  Receive Date: 20110130
  Receipt Date: 20101213
  Transmission Date: 20110831
  Serious: No
  Sender: FDA-Public Use
  Company Number: US-ABBOTT-10P-163-0691657-00

PATIENT
  Sex: Female
  Weight: 59.02 kg

DRUGS (6)
  1. MELOXICAM [Concomitant]
     Indication: RHEUMATOID ARTHRITIS
  2. LEXAPRO [Concomitant]
     Indication: ANXIETY
  3. LEVOTHYROXINE SODIUM [Concomitant]
     Indication: HYPOTHYROIDISM
     Dates: start: 20100601
  4. HUMIRA [Suspect]
     Indication: RHEUMATOID ARTHRITIS
     Dates: start: 20070101, end: 20070101
  5. METHOTREXATE [Concomitant]
     Indication: RHEUMATOID ARTHRITIS
  6. HUMIRA [Suspect]
     Dates: start: 20070101

REACTIONS (4)
  - PAIN [None]
  - DRUG DOSE OMISSION [None]
  - OEDEMA PERIPHERAL [None]
  - SKIN MASS [None]
